FAERS Safety Report 9743163 (Version 1)
Quarter: 2013Q4

REPORT INFORMATION
  Report Type: Spontaneous
  Country: US (occurrence: US)
  Receive Date: 20131210
  Receipt Date: 20131210
  Transmission Date: 20140711
  Serious: No
  Sender: FDA-Public Use
  Company Number: US-GILEAD-2009-0024861

PATIENT
  Sex: Female

DRUGS (13)
  1. LETAIRIS [Suspect]
     Indication: PULMONARY ARTERIAL HYPERTENSION
     Route: 048
     Dates: start: 20090610
  2. PLAVIX [Concomitant]
  3. PREDNISONE [Concomitant]
  4. IMURAN [Concomitant]
  5. ZANTAC [Concomitant]
  6. NAC [Concomitant]
  7. L-CARNITINE [Concomitant]
  8. CALCIUM MAGNESIUM [Concomitant]
  9. FLAXSEED [Concomitant]
  10. LACTINEX [Concomitant]
  11. A-Z MULTIVITAMIN [Concomitant]
  12. ALOE VERA [Concomitant]
  13. KELP [Concomitant]

REACTIONS (1)
  - Pruritus [Unknown]
